FAERS Safety Report 4350348-4 (Version None)
Quarter: 2004Q2

REPORT INFORMATION
  Report Type: 
  Country: None (occurrence: None)
  Receive Date: 20040427
  Receipt Date: 20031016
  Transmission Date: 20050107
  Serious: No
  Sender: FDA-Public Use
  Company Number: 000676

PATIENT
  Age: 63 Year
  Sex: Male

DRUGS (6)
  1. ZEVALIN [Suspect]
     Indication: NON-HODGKIN'S LYMPHOMA
     Dosage: SEE IMAGE
     Route: 042
  2. ZEVALIN [Suspect]
     Indication: NON-HODGKIN'S LYMPHOMA
     Dosage: SEE IMAGE
     Route: 042
  3. ZEVALIN [Suspect]
     Indication: NON-HODGKIN'S LYMPHOMA
     Dosage: SEE IMAGE
     Route: 042
  4. ZEVALIN [Suspect]
     Indication: NON-HODGKIN'S LYMPHOMA
     Dosage: SEE IMAGE
     Route: 042
  5. .. [Suspect]
  6. .. [Suspect]

REACTIONS (2)
  - DISEASE PROGRESSION [None]
  - RENAL IMPAIRMENT [None]
